FAERS Safety Report 7284456-5 (Version None)
Quarter: 2011Q1

REPORT INFORMATION
  Report Type: 
  Country: None (occurrence: None)
  Receive Date: 20110209
  Receipt Date: 20110207
  Transmission Date: 20110831
  Serious: Yes (Hospitalization, Other)
  Sender: FDA-Public Use
  Company Number: US-PFIZER INC-2011027432

PATIENT
  Sex: Male
  Weight: 97.51 kg

DRUGS (4)
  1. ZETIA [Concomitant]
     Dosage: UNK
  2. DILANTIN [Suspect]
     Indication: CONVULSION
     Dosage: 100 MG, 4X/DAY
     Route: 048
  3. LYRICA [Suspect]
     Indication: CONVULSION
     Dosage: 250 MG, 2X/DAY
     Route: 048
     Dates: start: 20101001, end: 20110101
  4. SIMVASTATIN [Concomitant]
     Dosage: UNK

REACTIONS (5)
  - DIABETES MELLITUS [None]
  - DRUG INTOLERANCE [None]
  - UNRESPONSIVE TO STIMULI [None]
  - AGGRESSION [None]
  - HYPERTENSION [None]
